FAERS Safety Report 6022142-X (Version None)
Quarter: 2008Q4

REPORT INFORMATION
  Report Type: 
  Country: None (occurrence: None)
  Receive Date: 20081223
  Receipt Date: 20081211
  Transmission Date: 20090506
  Serious: Yes (Other)
  Sender: FDA-Public Use
  Company Number: IPS_01335_2008

PATIENT
  Age: 64 Year
  Sex: Male

DRUGS (5)
  1. APO-GO    (APO-GO - APOMORPHINE HYDROCHLORIDE) (NOT SPECIFIED) [Suspect]
     Indication: PARKINSON'S DISEASE
     Dosage: 50 MG PER DAY SUBCUTANEOUS
     Route: 058
  2. MADOPAR [Concomitant]
  3. TOLTERODINE TARTRATE [Concomitant]
  4. FEXOFENADINE [Concomitant]
  5. TEMAZEPAM [Concomitant]

REACTIONS (8)
  - BLADDER SPASM [None]
  - HYPOTENSION [None]
  - INCORRECT ROUTE OF DRUG ADMINISTRATION [None]
  - INSOMNIA [None]
  - JOINT SWELLING [None]
  - RASH GENERALISED [None]
  - RASH PRURITIC [None]
  - SKIN LACERATION [None]
